FAERS Safety Report 5744817-X (Version None)
Quarter: 2008Q2

REPORT INFORMATION
  Report Type: 
  Country: None (occurrence: None)
  Receive Date: 20080516
  Receipt Date: 20080505
  Transmission Date: 20081010
  Serious: Yes (Other)
  Sender: FDA-Public Use
  Company Number: 234197J08USA

PATIENT
  Age: 56 Year
  Sex: Female
  Weight: 111.1313 kg

DRUGS (8)
  1. REBIF [Suspect]
     Indication: MULTIPLE SCLEROSIS
     Dosage: 44 MCG, 3 IN 1 WEEKS, SUBCUTANEOUS
     Route: 058
     Dates: start: 20071022
  2. PRAVASTATIN [Concomitant]
  3. SYNTHROID [Concomitant]
  4. CLONIDINE [Concomitant]
  5. SOLU-MEDROL [Concomitant]
  6. WELLBUTRIN [Concomitant]
  7. LASIX [Concomitant]
  8. TRIGLIDE [Concomitant]

REACTIONS (5)
  - EJECTION FRACTION DECREASED [None]
  - LEFT ATRIAL DILATATION [None]
  - PALPITATIONS [None]
  - VENTRICULAR DYSFUNCTION [None]
  - VENTRICULAR HYPERTROPHY [None]
